FAERS Safety Report 15185242 (Version 16)
Quarter: 2024Q2

REPORT INFORMATION
  Report Type: Report from Study
  Country: CO (occurrence: CO)
  Receive Date: 20180723
  Receipt Date: 20240626
  Transmission Date: 20240716
  Serious: Yes (Hospitalization, Disabling, Other)
  Sender: FDA-Public Use
  Company Number: PHHY2018CO067874

PATIENT
  Sex: Female
  Weight: 60 kg

DRUGS (6)
  1. GILENYA [Suspect]
     Active Substance: FINGOLIMOD HYDROCHLORIDE
     Indication: Multiple sclerosis
     Dosage: 0.5 MG, QD
     Route: 048
     Dates: start: 20120509
  2. GILENYA [Suspect]
     Active Substance: FINGOLIMOD HYDROCHLORIDE
     Dosage: 0.5 MG, QD
     Route: 048
     Dates: start: 20141111
  3. GILENYA [Suspect]
     Active Substance: FINGOLIMOD HYDROCHLORIDE
     Dosage: 0.5 MG, Q48H
     Route: 048
  4. GILENYA [Suspect]
     Active Substance: FINGOLIMOD HYDROCHLORIDE
     Dosage: 0.5 MG, QD (MORE THAN 10 YEARS AGO)
     Route: 048
  5. GILENYA [Suspect]
     Active Substance: FINGOLIMOD HYDROCHLORIDE
     Dosage: 0.5 MG, EVERY 2 OR 3  DAYS
     Route: 065
  6. GILENYA [Suspect]
     Active Substance: FINGOLIMOD HYDROCHLORIDE
     Dosage: 0.5 MG, Q12H
     Route: 048

REACTIONS (47)
  - Pyrexia [Unknown]
  - Renal disorder [Unknown]
  - Bacterial infection [Unknown]
  - Urinary tract infection [Unknown]
  - Hypoaesthesia [Not Recovered/Not Resolved]
  - Musculoskeletal stiffness [Not Recovered/Not Resolved]
  - Osteonecrosis [Not Recovered/Not Resolved]
  - Multiple sclerosis relapse [Unknown]
  - Vision blurred [Recovering/Resolving]
  - Balance disorder [Unknown]
  - Paralysis [Unknown]
  - Fatigue [Unknown]
  - Bacterial infection [Recovered/Resolved]
  - Kidney infection [Recovering/Resolving]
  - Cold sweat [Recovering/Resolving]
  - Multiple sclerosis [Unknown]
  - Grip strength decreased [Unknown]
  - Dysgraphia [Unknown]
  - Tendon disorder [Recovering/Resolving]
  - Oropharyngeal discomfort [Unknown]
  - Muscular weakness [Not Recovered/Not Resolved]
  - Vomiting [Recovering/Resolving]
  - Mobility decreased [Not Recovered/Not Resolved]
  - Gait disturbance [Unknown]
  - Pain in extremity [Not Recovered/Not Resolved]
  - Peripheral swelling [Not Recovered/Not Resolved]
  - Depression [Recovering/Resolving]
  - Limb discomfort [Unknown]
  - Joint swelling [Unknown]
  - Inflammation [Unknown]
  - Amnesia [Unknown]
  - Affect lability [Recovering/Resolving]
  - Inflammation [Recovered/Resolved]
  - Dizziness [Recovering/Resolving]
  - Headache [Unknown]
  - Influenza [Unknown]
  - Cough [Unknown]
  - Hypertension [Unknown]
  - Weight increased [Unknown]
  - Nasopharyngitis [Unknown]
  - Pain [Unknown]
  - Gait inability [Unknown]
  - Nausea [Not Recovered/Not Resolved]
  - Inappropriate schedule of product administration [Unknown]
  - Overdose [Unknown]
  - Underdose [Unknown]
  - Product availability issue [Unknown]

NARRATIVE: CASE EVENT DATE: 20180101
